FAERS Safety Report 6931437-4 (Version None)
Quarter: 2010Q3

REPORT INFORMATION
  Report Type: 
  Country: None (occurrence: None)
  Receive Date: 20100816
  Receipt Date: 20100730
  Transmission Date: 20110219
  Serious: Yes (Other)
  Sender: FDA-Public Use
  Company Number: ACO_01040_2010

PATIENT
  Sex: Male
  Weight: 89.3586 kg

DRUGS (8)
  1. AMPYRA [Suspect]
     Indication: GAIT DISTURBANCE
     Dosage: 10 MG BID, ORAL (10 MG BID ORAL)
     Route: 048
     Dates: start: 20100518, end: 20100727
  2. AMPYRA [Suspect]
     Indication: GAIT DISTURBANCE
     Dosage: 10 MG BID, ORAL (10 MG BID ORAL)
     Route: 048
     Dates: start: 20100730, end: 20100802
  3. VALSARTAN [Concomitant]
  4. CRESTOR [Concomitant]
  5. PROPAFENONE HCL [Concomitant]
  6. MULTI-VITAMINS [Concomitant]
  7. COUMADIN /00627701/ [Concomitant]
  8. LOSARTAN [Concomitant]

REACTIONS (5)
  - DRUG WITHDRAWAL SYNDROME [None]
  - GAIT DISTURBANCE [None]
  - HALLUCINATION, AUDITORY [None]
  - INSOMNIA [None]
  - PERIPHERAL COLDNESS [None]
